FAERS Safety Report 9973765 (Version 2)
Quarter: 2014Q1

REPORT INFORMATION
  Report Type: Spontaneous
  Country: US (occurrence: US)
  Receive Date: 20140306
  Receipt Date: 20140328
  Transmission Date: 20141002
  Serious: No
  Sender: FDA-Public Use
  Company Number: US-B.I. PHARMACEUTICALS,INC./RIDGEFIELD-2014-BI-08339BP

PATIENT
  Age: 83 Year
  Sex: Male

DRUGS (3)
  1. SPIRIVA [Suspect]
     Indication: CHRONIC OBSTRUCTIVE PULMONARY DISEASE
     Dosage: 18 MCG
     Route: 055
     Dates: start: 201401
  2. DULERA [Concomitant]
     Route: 055
  3. ASPIRIN [Concomitant]
     Route: 048

REACTIONS (2)
  - Dysgeusia [Not Recovered/Not Resolved]
  - Vomiting [Recovered/Resolved]
